FAERS Safety Report 10120200 (Version 2)
Quarter: 2014Q2

REPORT INFORMATION
  Report Type: Spontaneous
  Country: CN (occurrence: CN)
  Receive Date: 20140426
  Receipt Date: 20140523
  Transmission Date: 20141212
  Serious: Yes (Hospitalization, Other)
  Sender: FDA-Public Use
  Company Number: CN-JNJFOC-20140413325

PATIENT
  Age: 12 Month
  Sex: Female
  Weight: 10 kg

DRUGS (4)
  1. TYLENOL [Suspect]
     Route: 048
  2. TYLENOL [Suspect]
     Indication: PYREXIA
     Route: 048
     Dates: start: 20130116, end: 20130124
  3. CEFACLOR [Suspect]
     Indication: PYREXIA
     Route: 048
  4. HERBAL PREPARATION [Suspect]
     Indication: PYREXIA
     Route: 048

REACTIONS (1)
  - Leukopenia [Recovered/Resolved]
